FAERS Safety Report 8439914-4 (Version None)
Quarter: 2012Q2

REPORT INFORMATION
  Report Type: 
  Country: None (occurrence: None)
  Receive Date: 20120323
  Receipt Date: 20110610
  Transmission Date: 20120825
  Serious: Yes (Other)
  Sender: FDA-Public Use
  Company Number: 163-21880-11061612

PATIENT
  Age: 65 Year
  Sex: Male

DRUGS (1)
  1. REVLIMID [Suspect]
     Indication: MULTIPLE MYELOMA
     Dosage: 25 MG, DAILY X 21 DAYS/OFF 7 DAYS, PO
     Route: 048
     Dates: start: 20110520, end: 20110529

REACTIONS (6)
  - ABDOMINAL DISCOMFORT [None]
  - SWELLING FACE [None]
  - URTICARIA [None]
  - DIARRHOEA [None]
  - VOMITING [None]
  - RASH PRURITIC [None]
